FAERS Safety Report 21918734 (Version 4)
Quarter: 2023Q1

REPORT INFORMATION
  Report Type: Spontaneous
  Country: US (occurrence: US)
  Receive Date: 20230127
  Receipt Date: 20230329
  Transmission Date: 20230418
  Serious: No
  Sender: FDA-Public Use
  Company Number: US-BRISTOL-MYERS SQUIBB COMPANY-2023-012452

PATIENT
  Age: 64 Year
  Sex: Female
  Weight: 62.6 kg

DRUGS (2)
  1. REVLIMID [Suspect]
     Active Substance: LENALIDOMIDE
     Indication: Bone neoplasm
     Route: 048
     Dates: start: 20230110
  2. REVLIMID [Suspect]
     Active Substance: LENALIDOMIDE
     Dosage: DAILY 1-14, THEN 7 DAYS OFF
     Route: 048
     Dates: start: 20230110

REACTIONS (8)
  - Off label use [Unknown]
  - Rash [Unknown]
  - Sleep disorder [Unknown]
  - Pain in extremity [Unknown]
  - Arthralgia [Unknown]
  - Neck pain [Unknown]
  - Hypersensitivity [Unknown]
  - Red blood cell count decreased [Not Recovered/Not Resolved]

NARRATIVE: CASE EVENT DATE: 20230110
